FAERS Safety Report 8611558-0 (Version None)
Quarter: 2012Q3

REPORT INFORMATION
  Report Type: 
  Country: None (occurrence: None)
  Receive Date: 20120822
  Receipt Date: 20120817
  Transmission Date: 20120928
  Serious: Yes (Death, Other)
  Sender: FDA-Public Use
  Company Number: PHHY2012GB071763

PATIENT
  Age: 16 Year
  Sex: Female

DRUGS (3)
  1. METHADONE HYDROCHLORIDE [Suspect]
  2. DOTHIEPIN HYDROCHLORIDE [Suspect]
  3. ALCOHOL [Suspect]

REACTIONS (3)
  - DRUG LEVEL INCREASED [None]
  - COMPLETED SUICIDE [None]
  - TOXICITY TO VARIOUS AGENTS [None]
